FAERS Safety Report 6511450-1 (Version None)
Quarter: 2009Q4

REPORT INFORMATION
  Report Type: 
  Country: None (occurrence: None)
  Receive Date: 20091222
  Receipt Date: 20091214
  Transmission Date: 20100525
  Serious: Yes (Other)
  Sender: FDA-Public Use
  Company Number: PT-ABBOTT-09P-130-0614027-00

PATIENT
  Sex: Male

DRUGS (8)
  1. HUMIRA [Suspect]
     Indication: ANKYLOSING SPONDYLITIS
     Route: 058
     Dates: start: 20080201
  2. HUMIRA [Suspect]
     Route: 058
     Dates: start: 20091125
  3. LETTER [Concomitant]
     Indication: GOITRE
     Dosage: ONE TABLET AND A HALF
     Dates: start: 20060101
  4. ZARATOR [Concomitant]
     Indication: BLOOD CHOLESTEROL INCREASED
  5. LOSARTAN [Concomitant]
     Indication: HYPERTENSION
  6. TRIMETAZIDINE [Concomitant]
     Indication: DRUG USE FOR UNKNOWN INDICATION
  7. PANTOPRAZOLE [Concomitant]
     Indication: DRUG USE FOR UNKNOWN INDICATION
  8. OLCADIL [Concomitant]
     Indication: ANXIETY

REACTIONS (1)
  - THYROID NEOPLASM [None]
